FAERS Safety Report 7214777-3 (Version None)
Quarter: 2011Q1

REPORT INFORMATION
  Report Type: 
  Country: None (occurrence: None)
  Receive Date: 20110107
  Receipt Date: 20100208
  Transmission Date: 20110831
  Serious: No
  Sender: FDA-Public Use
  Company Number: A0843508A

PATIENT
  Age: 75 Year
  Sex: Female

DRUGS (5)
  1. VIACTIV CALCIUM [Concomitant]
  2. MOBIC [Concomitant]
  3. LOVAZA [Suspect]
     Dosage: 4CAP PER DAY
     Route: 048
     Dates: start: 20080101
  4. SYNTHROID [Concomitant]
  5. MAGNESIUM [Concomitant]

REACTIONS (1)
  - HAIR COLOUR CHANGES [None]
